FAERS Safety Report 14066360 (Version 2)
Quarter: 2018Q1

REPORT INFORMATION
  Report Type: Report from Study
  Country: US (occurrence: US)
  Receive Date: 20171009
  Receipt Date: 20180215
  Transmission Date: 20180508
  Serious: Yes (Hospitalization)
  Sender: FDA-Public Use
  Company Number: PHHO2017US014054

PATIENT
  Age: 16 Year
  Sex: Male

DRUGS (30)
  1. VINCRISTINE [Suspect]
     Active Substance: VINCRISTINE
     Dosage: 2 MG, ONCE/SINGLE
     Route: 042
     Dates: start: 20170710, end: 20170710
  2. MERCAPTOPURINE. [Suspect]
     Active Substance: MERCAPTOPURINE
     Indication: B PRECURSOR TYPE ACUTE LEUKAEMIA
     Dosage: 725 MG, QW
     Route: 048
     Dates: start: 20170619, end: 20170702
  3. CYCLOPHOSPHAMIDE. [Suspect]
     Active Substance: CYCLOPHOSPHAMIDE
     Indication: B PRECURSOR TYPE ACUTE LEUKAEMIA
     Dosage: 1740 MG, ONCE/SINGLE
     Route: 042
     Dates: start: 20170619, end: 20170619
  4. METHOTREXATE. [Suspect]
     Active Substance: METHOTREXATE
     Dosage: 6100 MG, ONCE/SINGLE
     Route: 042
     Dates: start: 20170829, end: 20170829
  5. INC424A [Suspect]
     Active Substance: RUXOLITINIB
     Dosage: 85 MG, BID
     Route: 048
     Dates: start: 20170724, end: 20170806
  6. MERCAPTOPURINE. [Suspect]
     Active Substance: MERCAPTOPURINE
     Dosage: 700 MG, QW
     Route: 048
     Dates: start: 20170724, end: 20170806
  7. CYTARABINE. [Suspect]
     Active Substance: CYTARABINE
     Dosage: 130 MG, QD
     Route: 058
     Dates: start: 20170724, end: 20170727
  8. CYTARABINE. [Suspect]
     Active Substance: CYTARABINE
     Dosage: 130 MG, QD
     Route: 058
     Dates: start: 20170803, end: 20170803
  9. CYCLOPHOSPHAMIDE. [Suspect]
     Active Substance: CYCLOPHOSPHAMIDE
     Dosage: 1700 MG, ONCE/SINGLE
     Route: 042
     Dates: start: 20170624, end: 20170624
  10. METHOTREXATE. [Suspect]
     Active Substance: METHOTREXATE
     Dosage: 6100 MG, ONCE/SINGLE
     Route: 042
     Dates: start: 20170922, end: 20170922
  11. VINCRISTINE [Suspect]
     Active Substance: VINCRISTINE
     Dosage: 2 MG, ONCE/SINGLE
     Route: 042
     Dates: start: 20170822, end: 20170822
  12. VINCRISTINE [Suspect]
     Active Substance: VINCRISTINE
     Dosage: 2 MG, ONCE/SINGLE
     Route: 042
     Dates: start: 20170922, end: 20170922
  13. CYTARABINE. [Suspect]
     Active Substance: CYTARABINE
     Dosage: 130 MG, QD
     Route: 058
     Dates: start: 20170731, end: 20170731
  14. PEGASPARGASE [Suspect]
     Active Substance: PEGASPARGASE
     Dosage: 4200 IU, ONCE/SINGLE
     Route: 042
     Dates: start: 20170814, end: 20170814
  15. METHOTREXATE. [Suspect]
     Active Substance: METHOTREXATE
     Dosage: 15 MG, UNK
     Route: 037
     Dates: start: 20170705, end: 20170705
  16. METHOTREXATE. [Suspect]
     Active Substance: METHOTREXATE
     Dosage: 8150 MG, ONCE/SINGLE (HIGH DOSE)
     Route: 042
     Dates: start: 20170829
  17. MERCAPTOPURINE. [Suspect]
     Active Substance: MERCAPTOPURINE
     Dosage: 275 MG, QW
     Route: 048
     Dates: start: 20170829, end: 20170906
  18. METHOTREXATE. [Suspect]
     Active Substance: METHOTREXATE
     Dosage: 15 MG, UNK
     Route: 037
     Dates: start: 20170627, end: 20170627
  19. CYTARABINE. [Suspect]
     Active Substance: CYTARABINE
     Dosage: 130 MG, QD
     Route: 058
     Dates: start: 20170626, end: 20170629
  20. INC424A [Suspect]
     Active Substance: RUXOLITINIB
     Indication: B PRECURSOR TYPE ACUTE LEUKAEMIA
     Dosage: 85 MG, BID
     Route: 048
     Dates: start: 20170619, end: 20170704
  21. VINCRISTINE [Suspect]
     Active Substance: VINCRISTINE
     Indication: B PRECURSOR TYPE ACUTE LEUKAEMIA
     Dosage: 2 MG, ONCE/SINGLE
     Route: 042
     Dates: start: 20170703, end: 20170703
  22. VINCRISTINE [Suspect]
     Active Substance: VINCRISTINE
     Dosage: 2 MG, ONCE/SINGLE
     Route: 042
     Dates: start: 20170814, end: 20170814
  23. METHOTREXATE. [Suspect]
     Active Substance: METHOTREXATE
     Dosage: 15 MG, UNK
     Route: 037
     Dates: start: 20170711, end: 20170711
  24. METHOTREXATE. [Suspect]
     Active Substance: METHOTREXATE
     Dosage: 12 MG, ONCE/SINGLE
     Route: 037
     Dates: start: 20170829
  25. INC424A [Suspect]
     Active Substance: RUXOLITINIB
     Dosage: 80 MG, BID
     Route: 048
     Dates: start: 20170829, end: 20170906
  26. LEUCOVORIN. [Suspect]
     Active Substance: LEUCOVORIN
     Indication: B PRECURSOR TYPE ACUTE LEUKAEMIA
     Dosage: 24 MG, Q6H
     Route: 042
     Dates: start: 20170831, end: 20170925
  27. CYTARABINE. [Suspect]
     Active Substance: CYTARABINE
     Indication: B PRECURSOR TYPE ACUTE LEUKAEMIA
     Dosage: 130 MG, QD
     Route: 058
     Dates: start: 20170619, end: 20170622
  28. METHOTREXATE. [Suspect]
     Active Substance: METHOTREXATE
     Indication: B PRECURSOR TYPE ACUTE LEUKAEMIA
     Dosage: 15 MG, UNK
     Route: 037
     Dates: start: 20170620, end: 20170620
  29. VINCRISTINE [Suspect]
     Active Substance: VINCRISTINE
     Dosage: 2 MG, ONCE/SINGLE
     Route: 042
     Dates: start: 20170807, end: 20170807
  30. PEGASPARGASE [Suspect]
     Active Substance: PEGASPARGASE
     Indication: B PRECURSOR TYPE ACUTE LEUKAEMIA
     Dosage: 4350 IU, ONCE/SINGLE
     Route: 042
     Dates: start: 20170703, end: 20170703

REACTIONS (2)
  - Dehydration [Recovered/Resolved]
  - Stomatitis [Recovered/Resolved]

NARRATIVE: CASE EVENT DATE: 20170928
